FAERS Safety Report 9012054 (Version 2)
Quarter: 2013Q1

REPORT INFORMATION
  Report Type: Spontaneous
  Country: JP (occurrence: JP)
  Receive Date: 20130114
  Receipt Date: 20130204
  Transmission Date: 20140127
  Serious: Yes (Hospitalization)
  Sender: FDA-Public Use
  Company Number: JP-ROCHE-1178019

PATIENT
  Age: 39 Year
  Sex: Female
  Weight: 74 kg

DRUGS (11)
  1. ACTEMRA [Suspect]
     Indication: RHEUMATOID ARTHRITIS
     Route: 041
     Dates: start: 20121025, end: 20121121
  2. ACTEMRA [Suspect]
     Indication: RHEUMATOID ARTHRITIS
     Dosage: DOSAGE IS UNCERTAIN.
     Route: 041
     Dates: start: 20130125
  3. METHOTREXATE [Suspect]
     Indication: RHEUMATOID ARTHRITIS
     Route: 048
     Dates: end: 20121219
  4. TIZANIDINE HYDROCHLORIDE [Concomitant]
     Indication: TENSION HEADACHE
     Dosage: DRUG REPORTED AS ENCHININ
     Route: 048
  5. ISCOTIN [Concomitant]
     Indication: PROPHYLAXIS
     Route: 048
  6. PYDOXAL [Concomitant]
     Indication: PROPHYLAXIS
     Route: 048
  7. ALENDRONATE [Concomitant]
     Indication: OSTEOPOROSIS
     Route: 048
  8. ALLEGRA [Concomitant]
     Indication: CHRONIC SINUSITIS
     Route: 048
  9. GASTROM [Concomitant]
     Indication: GASTRITIS
     Route: 048
  10. LANSOPRAZOLE [Concomitant]
     Indication: GASTRITIS
     Dosage: DRUG REPORTED AS LANSOPRAZOLE-OD
     Route: 048
  11. CALONAL [Concomitant]
     Indication: RHEUMATOID ARTHRITIS
     Route: 048

REACTIONS (2)
  - Interstitial lung disease [Recovered/Resolved]
  - Rheumatoid arthritis [Recovered/Resolved]
